FAERS Safety Report 12979925 (Version 1)
Quarter: 2016Q4

REPORT INFORMATION
  Report Type: Spontaneous
  Country: US (occurrence: US)
  Receive Date: 20161128
  Receipt Date: 20161128
  Transmission Date: 20170207
  Serious: Yes (Disabling, Other)
  Sender: FDA-Public Use
  Company Number: US-REGENERON PHARMACEUTICALS, INC.-2016-24221

PATIENT

DRUGS (4)
  1. EYLEA [Suspect]
     Active Substance: AFLIBERCEPT
     Dosage: UNK, RIGHT EYE (4TH DOSE)
     Dates: start: 20160406, end: 20160406
  2. EYLEA [Suspect]
     Active Substance: AFLIBERCEPT
     Dosage: UNK, RIGHT EYE
  3. EYLEA [Suspect]
     Active Substance: AFLIBERCEPT
     Indication: NEOVASCULAR AGE-RELATED MACULAR DEGENERATION
     Dosage: UNK, LEFT EYE
     Dates: start: 20160111
  4. EYLEA [Suspect]
     Active Substance: AFLIBERCEPT
     Dosage: UNK, LEFT EYE
     Dates: start: 20161114, end: 20161114

REACTIONS (2)
  - Blindness [Unknown]
  - Eye infection bacterial [Recovering/Resolving]

NARRATIVE: CASE EVENT DATE: 201611
